FAERS Safety Report 6967525-6 (Version None)
Quarter: 2010Q3

REPORT INFORMATION
  Report Type: 
  Country: None (occurrence: None)
  Receive Date: 20100901
  Receipt Date: 20100823
  Transmission Date: 20110219
  Serious: Yes (Hospitalization, Other)
  Sender: FDA-Public Use
  Company Number: URSO-2010-098

PATIENT
  Age: 83 Year
  Sex: Female

DRUGS (10)
  1. URSODIOL [Suspect]
     Indication: HEPATIC FUNCTION ABNORMAL
     Dosage: 300 MG, ORAL
     Route: 048
     Dates: end: 20100729
  2. DEPAS (ETIZOLAM) [Suspect]
     Indication: NEUROSIS
     Dosage: 1.5MG, ORAL
     Route: 048
     Dates: end: 20100729
  3. ASPARA K (L-ASPARTATE POTASSIUM) [Concomitant]
  4. MAGMITT (MAGNESIUM OXIDE) [Concomitant]
  5. PRORENAL (LIMAPROST ALFADEX) [Concomitant]
  6. VERAPAMIL HYDROCHLORIDE [Concomitant]
  7. DIGOXIN [Concomitant]
  8. ONEALFA (ALFACALCIDOL) [Concomitant]
  9. MUCOSTA (REBAMIPIDE) [Concomitant]
  10. METHYCOBAL (MECOBALAMIN) [Concomitant]

REACTIONS (3)
  - BONE DISORDER [None]
  - INTERSTITIAL LUNG DISEASE [None]
  - MUSCULOSKELETAL DISORDER [None]
